FAERS Safety Report 4748409-0 (Version None)
Quarter: 2005Q3

REPORT INFORMATION
  Report Type: 
  Country: None (occurrence: None)
  Receive Date: 20050818
  Receipt Date: 20050804
  Transmission Date: 20060218
  Serious: Yes (Life-Threatening, Hospitalization, Other)
  Sender: FDA-Public Use
  Company Number: 200419283BWH

PATIENT
  Age: 64 Year
  Sex: Female
  Weight: 99.7913 kg

DRUGS (7)
  1. AVELOX [Suspect]
     Indication: CELLULITIS
     Dosage: 400 MG, TOTAL DAILY, INTRAVENOUS
     Route: 042
  2. AVELOX [Suspect]
     Indication: THROMBOPHLEBITIS
     Dosage: 400 MG, TOTAL DAILY, INTRAVENOUS
     Route: 042
  3. LOPRESSOR [Concomitant]
  4. COUMADIN [Concomitant]
  5. URSODIOL [Concomitant]
  6. DIGITEK [Concomitant]
  7. LEVAQUIN [Concomitant]

REACTIONS (22)
  - ATRIOVENTRICULAR BLOCK [None]
  - BLOOD ALKALINE PHOSPHATASE INCREASED [None]
  - BLOOD BILIRUBIN INCREASED [None]
  - CARDIAC ARREST [None]
  - CONVULSION [None]
  - CORONARY ARTERY DISEASE [None]
  - DYSPNOEA [None]
  - HEPATIC FUNCTION ABNORMAL [None]
  - HYPERTROPHIC OBSTRUCTIVE CARDIOMYOPATHY [None]
  - HYPOKALAEMIA [None]
  - HYPOMAGNESAEMIA [None]
  - LOSS OF CONSCIOUSNESS [None]
  - MYOCARDIAL INFARCTION [None]
  - PORTAL HYPERTENSION [None]
  - SEPSIS [None]
  - SPLENOMEGALY [None]
  - THROMBOCYTOPENIA [None]
  - TORSADE DE POINTES [None]
  - TRICUSPID VALVE INCOMPETENCE [None]
  - VARICES OESOPHAGEAL [None]
  - VENTRICULAR FIBRILLATION [None]
  - VENTRICULAR HYPERTROPHY [None]
